FAERS Safety Report 8286756-9 (Version None)
Quarter: 2012Q2

REPORT INFORMATION
  Report Type: 
  Country: None (occurrence: None)
  Receive Date: 20120411
  Receipt Date: 20120329
  Transmission Date: 20120825
  Serious: Yes (Other)
  Sender: FDA-Public Use
  Company Number: NSR_00522_2012

PATIENT

DRUGS (2)
  1. FLUOXETINE [Concomitant]
  2. FLUOXETINE [Suspect]
     Indication: DEPRESSION
     Dosage: (40 MG ORAL)
     Route: 048
     Dates: start: 20120101, end: 20120201

REACTIONS (4)
  - DEPRESSION [None]
  - PRODUCT QUALITY ISSUE [None]
  - SUICIDAL IDEATION [None]
  - DRUG INEFFECTIVE [None]
